FAERS Safety Report 17553382 (Version 1)
Quarter: 2020Q1

REPORT INFORMATION
  Report Type: Spontaneous
  Country: GB (occurrence: GB)
  Receive Date: 20200317
  Receipt Date: 20200317
  Transmission Date: 20200409
  Serious: Yes (Other)
  Sender: FDA-Public Use
  Company Number: GB-JNJFOC-20200308943

PATIENT
  Age: 64 Year
  Sex: Male

DRUGS (4)
  1. PROPOFOL. [Suspect]
     Active Substance: PROPOFOL
     Indication: INDUCTION OF ANAESTHESIA
     Route: 065
     Dates: start: 20191011
  2. CO-AMOXICLAV                       /02043401/ [Suspect]
     Active Substance: AMOXICILLIN\CLAVULANIC ACID
     Indication: BIOPSY RECTUM
     Route: 065
     Dates: start: 20191011
  3. ONDANSETRON [Suspect]
     Active Substance: ONDANSETRON
     Indication: BIOPSY RECTUM
     Route: 065
     Dates: start: 20191011
  4. DUROGESIC [Suspect]
     Active Substance: FENTANYL
     Indication: BIOPSY RECTUM
     Route: 065
     Dates: start: 20191011

REACTIONS (3)
  - Oxygen saturation immeasurable [Recovered/Resolved]
  - Hypotension [Recovered/Resolved]
  - Pulse absent [Recovered/Resolved]

NARRATIVE: CASE EVENT DATE: 20191011
